FAERS Safety Report 5689065-7 (Version None)
Quarter: 2008Q1

REPORT INFORMATION
  Report Type: 
  Country: None (occurrence: None)
  Receive Date: 20080331
  Receipt Date: 20080326
  Transmission Date: 20080703
  Serious: Yes (Other)
  Sender: FDA-Public Use
  Company Number: B0514107A

PATIENT
  Age: 41 Year
  Sex: Female

DRUGS (1)
  1. CLAMOXYL [Suspect]
     Indication: DRUG USE FOR UNKNOWN INDICATION
     Dosage: 1.5G TWICE PER DAY
     Route: 048
     Dates: start: 20080312, end: 20080313

REACTIONS (5)
  - DRUG HYPERSENSITIVITY [None]
  - ERYTHEMA [None]
  - EYELID OEDEMA [None]
  - FACE OEDEMA [None]
  - PRURITUS [None]
